FAERS Safety Report 12205758 (Version 1)
Quarter: 2016Q1

REPORT INFORMATION
  Report Type: Other
  Country: GB (occurrence: GB)
  Receive Date: 20160323
  Receipt Date: 20160323
  Transmission Date: 20160526
  Serious: Yes (Other)
  Sender: FDA-Public Use
  Company Number: GB-MYLANLABS-2016M1011654

PATIENT

DRUGS (4)
  1. PROPRANOLOL [Concomitant]
     Active Substance: PROPRANOLOL\PROPRANOLOL HYDROCHLORIDE
     Dosage: UNK
  2. HYDROXYCHLOROQUINE SULPHATE [Interacting]
     Active Substance: HYDROXYCHLOROQUINE
     Indication: PALINDROMIC RHEUMATISM
     Dosage: 400 MG, BID
     Route: 048
  3. SERTRALINE ACTAVIS [Concomitant]
     Active Substance: SERTRALINE HYDROCHLORIDE
     Dosage: UNK
  4. RANITIDINE MYLAN 150 MG [Suspect]
     Active Substance: RANITIDINE HYDROCHLORIDE
     Dosage: 150 MG, UNK

REACTIONS (8)
  - Nausea [Unknown]
  - Drug interaction [Unknown]
  - Abdominal discomfort [Recovered/Resolved]
  - Diarrhoea [Unknown]
  - Pollakiuria [Unknown]
  - Flatulence [Unknown]
  - Abdominal distension [Unknown]
  - Muscle spasms [Unknown]
